FAERS Safety Report 23147010 (Version 1)
Quarter: 2023Q4

REPORT INFORMATION
  Report Type: Spontaneous
  Country: US (occurrence: US)
  Receive Date: 20231106
  Receipt Date: 20231106
  Transmission Date: 20240109
  Serious: Yes (Hospitalization)
  Sender: FDA-Public Use
  Company Number: US-drreddys-LIT/USA/23/0182058

PATIENT
  Age: 62 Year
  Sex: Female

DRUGS (5)
  1. MINOCYCLINE HYDROCHLORIDE [Suspect]
     Active Substance: MINOCYCLINE HYDROCHLORIDE
     Indication: Alopecia scarring
     Route: 048
  2. DEXAMETHASONE [Suspect]
     Active Substance: DEXAMETHASONE
     Indication: Meningitis
  3. AMPICILLIN [Suspect]
     Active Substance: AMPICILLIN
     Indication: Meningitis
  4. VANCOMYCIN [Suspect]
     Active Substance: VANCOMYCIN
     Indication: Meningitis
  5. ACYCLOVIR [Suspect]
     Active Substance: ACYCLOVIR
     Indication: Meningitis

REACTIONS (2)
  - Drug reaction with eosinophilia and systemic symptoms [Recovering/Resolving]
  - Meningitis aseptic [Unknown]
